FAERS Safety Report 22256323 (Version 1)
Quarter: 2023Q2

REPORT INFORMATION
  Report Type: Report from Study
  Country: US (occurrence: US)
  Receive Date: 20230426
  Receipt Date: 20230426
  Transmission Date: 20230721
  Serious: Yes (Other)
  Sender: FDA-Public Use
  Company Number: US-BIOGEN-2023BI01201005

PATIENT
  Sex: Female
  Weight: 52.8 kg

DRUGS (9)
  1. TYSABRI [Suspect]
     Active Substance: NATALIZUMAB
     Indication: Relapsing-remitting multiple sclerosis
     Dosage: INFUSED OVER 1 HOUR
     Route: 050
     Dates: start: 20210412
  2. TOPAMAX [Suspect]
     Active Substance: TOPIRAMATE
     Indication: Migraine
     Route: 050
  3. MIDAZOLAM [Concomitant]
     Active Substance: MIDAZOLAM
     Indication: Migraine
     Route: 050
  4. ATIVAN [Concomitant]
     Active Substance: LORAZEPAM
     Indication: Migraine
     Route: 050
  5. ONFI [Concomitant]
     Active Substance: CLOBAZAM
     Indication: Migraine
     Route: 050
  6. CELEXA [Concomitant]
     Active Substance: CITALOPRAM HYDROBROMIDE
     Indication: Product used for unknown indication
     Route: 050
     Dates: start: 20211123, end: 20230414
  7. Xanaflex [Concomitant]
     Indication: Muscle spasms
     Route: 050
     Dates: start: 20230414
  8. VITAMIN D2 [Concomitant]
     Active Substance: ERGOCALCIFEROL
     Indication: Vitamin D deficiency
     Dosage: 5000 UNITS
     Route: 050
     Dates: start: 20230414
  9. BACLOFEN [Concomitant]
     Active Substance: BACLOFEN
     Indication: Product used for unknown indication
     Route: 050

REACTIONS (7)
  - Idiopathic generalised epilepsy [Unknown]
  - Abnormal loss of weight [Unknown]
  - Decreased appetite [Unknown]
  - Multiple sclerosis relapse [Unknown]
  - Stress [Unknown]
  - Dystonia [Unknown]
  - Depression [Unknown]
